FAERS Safety Report 5826837-X (Version None)
Quarter: 2008Q3

REPORT INFORMATION
  Report Type: 
  Country: None (occurrence: None)
  Receive Date: 20080729
  Receipt Date: 20080729
  Transmission Date: 20090109
  Serious: Yes (Hospitalization)
  Sender: FDA-Public Use
  Company Number: None

PATIENT
  Sex: Male
  Weight: 80 kg

DRUGS (9)
  1. AVASTIN [Suspect]
     Indication: MIXED OLIGO-ASTROCYTOMA
     Dosage: 826MG IV Q 2 WEEKS  CYCLE 4
     Route: 042
     Dates: start: 20080520
  2. ERLOTINIB 200MG (GENENTECH) [Suspect]
     Indication: MIXED OLIGO-ASTROCYTOMA
     Dosage: 200MG PO DAILY  CYCLE 4
     Route: 048
     Dates: start: 20080520, end: 20080624
  3. PREDNISONE TAB [Concomitant]
  4. MINOCYCLINE HCL [Concomitant]
  5. TYLENOL [Concomitant]
  6. KEPPRA [Concomitant]
  7. LORAZEPAM [Concomitant]
  8. HYDROXYZINE [Concomitant]
  9. HCL [Concomitant]

REACTIONS (4)
  - INTRACRANIAL HYPOTENSION [None]
  - OPEN WOUND [None]
  - WOUND COMPLICATION [None]
  - WOUND SECRETION [None]
